FAERS Safety Report 17844133 (Version 2)
Quarter: 2020Q2

REPORT INFORMATION
  Report Type: Spontaneous
  Country: IT (occurrence: IT)
  Receive Date: 20200601
  Receipt Date: 20200618
  Transmission Date: 20200714
  Serious: Yes (Hospitalization)
  Sender: FDA-Public Use
  Company Number: IT-AUROBINDO-AUR-APL-2020-025597

PATIENT
  Age: 59 Year
  Sex: Female

DRUGS (10)
  1. EMTRICITABINE;TENOFOVIR DISOPROXIL [Suspect]
     Active Substance: EMTRICITABINE\TENOFOVIR DISOPROXIL
     Indication: ANTIRETROVIRAL THERAPY
     Dosage: UNK
     Route: 065
  2. RIFAMPICIN [Suspect]
     Active Substance: RIFAMPIN
     Indication: ANTIBIOTIC THERAPY
     Dosage: UNK
     Route: 065
  3. EMTRICITABINE;TENOFOVIR ALAFENAMIDE FUMARATE [Concomitant]
     Indication: HIV INFECTION
     Dosage: UNK
     Route: 065
     Dates: start: 20180413
  4. CLOPIDOGREL [Suspect]
     Active Substance: CLOPIDOGREL BISULFATE
     Indication: TRANSIENT ISCHAEMIC ATTACK
     Dosage: UNK
     Route: 065
  5. COBICISTAT;DARUNAVIR [Interacting]
     Active Substance: COBICISTAT\DARUNAVIR ETHANOLATE
     Indication: HIV INFECTION
     Dosage: UNK
     Route: 065
     Dates: start: 201804
  6. DOLUTEGRAVIR [Suspect]
     Active Substance: DOLUTEGRAVIR
     Indication: HIV INFECTION
  7. MARAVIROC [Interacting]
     Active Substance: MARAVIROC
     Dosage: 150 MILLIGRAM, TWO TIMES A DAY (300 MILLIGRAM DAILY)
     Route: 065
     Dates: start: 201804
  8. ROSUVASTATIN. [Suspect]
     Active Substance: ROSUVASTATIN
     Indication: TRANSIENT ISCHAEMIC ATTACK
     Dosage: UNK
     Route: 065
  9. DOLUTEGRAVIR [Suspect]
     Active Substance: DOLUTEGRAVIR
     Indication: ANTIRETROVIRAL THERAPY
     Dosage: 50 MILLIGRAM, ONCE A DAY
     Route: 065
     Dates: start: 20180413, end: 201804
  10. MARAVIROC [Interacting]
     Active Substance: MARAVIROC
     Indication: HIV INFECTION
     Dosage: 150 MILLIGRAM, TWO TIMES A DAY (300 MILLIGRAM DAILY)
     Route: 065

REACTIONS (7)
  - Condition aggravated [Recovered/Resolved]
  - Drug interaction [Unknown]
  - Depression [Recovered/Resolved]
  - Psychiatric symptom [Recovered/Resolved]
  - Anxiety [Recovered/Resolved]
  - Irritability [Recovered/Resolved]
  - Mental disorder [Recovered/Resolved]

NARRATIVE: CASE EVENT DATE: 20180416
